FAERS Safety Report 10659865 (Version 2)
Quarter: 2014Q4

REPORT INFORMATION
  Report Type: Spontaneous
  Country: US (occurrence: US)
  Receive Date: 20141217
  Receipt Date: 20141229
  Transmission Date: 20150529
  Serious: No
  Sender: FDA-Public Use
  Company Number: US-GLAXOSMITHKLINE-A1079301A

PATIENT

DRUGS (2)
  1. VOTRIENT [Suspect]
     Active Substance: PAZOPANIB HYDROCHLORIDE
     Indication: RENAL CANCER
     Dosage: 400 MG, QD
  2. VOTRIENT [Suspect]
     Active Substance: PAZOPANIB HYDROCHLORIDE
     Indication: NEOPLASM
     Dosage: 800 MG, 1D
     Dates: start: 20140605

REACTIONS (11)
  - Nausea [Unknown]
  - Thyroid disorder [Unknown]
  - Blood pressure increased [Unknown]
  - Skin ulcer [Unknown]
  - Hair colour changes [Unknown]
  - Fatigue [Unknown]
  - Dysphonia [Unknown]
  - Full blood count decreased [Unknown]
  - Muscle spasms [Unknown]
  - Diarrhoea [Unknown]
  - Mouth ulceration [Unknown]
